FAERS Safety Report 21533270 (Version 1)
Quarter: 2022Q4

REPORT INFORMATION
  Report Type: Spontaneous
  Country: US (occurrence: US)
  Receive Date: 20221101
  Receipt Date: 20221101
  Transmission Date: 20230113
  Serious: No
  Sender: FDA-Public Use
  Company Number: US-ABBVIE-4151312

PATIENT
  Sex: Female

DRUGS (6)
  1. SYNTHROID [Suspect]
     Active Substance: LEVOTHYROXINE SODIUM
     Indication: Product used for unknown indication
     Dosage: ROTATES BETWEEN 75MCG AND 50MCG
     Route: 048
  2. Briomet [Concomitant]
     Indication: Supplementation therapy
  3. MARSHMALLOW [Concomitant]
     Active Substance: ALCOHOL
     Indication: Supplementation therapy
  4. BENADRYL [Concomitant]
     Active Substance: DIPHENHYDRAMINE HYDROCHLORIDE
     Indication: Antiallergic therapy
  5. CORNSILK [Concomitant]
     Indication: Supplementation therapy
  6. FLAXSEED [Concomitant]
     Active Substance: FLAX SEED
     Indication: Supplementation therapy

REACTIONS (2)
  - Cystitis noninfective [Unknown]
  - General symptom [Unknown]

NARRATIVE: CASE EVENT DATE: 20220101
